FAERS Safety Report 5601830-0 (Version None)
Quarter: 2008Q1

REPORT INFORMATION
  Report Type: 
  Country: None (occurrence: None)
  Receive Date: 20080124
  Receipt Date: 20080109
  Transmission Date: 20080703
  Serious: Yes (Death, Hospitalization)
  Sender: FDA-Public Use
  Company Number: TW-GENENTECH-253297

PATIENT
  Age: 82 Year
  Sex: Female

DRUGS (4)
  1. AVASTIN [Suspect]
     Indication: COLON CANCER
     Dosage: 35 MG, UNK
     Route: 042
     Dates: start: 20070415
  2. FLUOROURACIL [Suspect]
     Indication: COLON CANCER
     Dates: start: 20070415
  3. FOLINIC ACID [Suspect]
     Indication: COLON CANCER
     Dates: start: 20070415
  4. IRINOTECAN [Suspect]
     Indication: COLON CANCER
     Dates: start: 20070415

REACTIONS (3)
  - GASTRIC HAEMORRHAGE [None]
  - GASTRIC PERFORATION [None]
  - MALNUTRITION [None]
